FAERS Safety Report 8554100-5 (Version None)
Quarter: 2012Q3

REPORT INFORMATION
  Report Type: 
  Country: None (occurrence: None)
  Receive Date: 20120731
  Receipt Date: 20120726
  Transmission Date: 20120928
  Serious: Yes (Other)
  Sender: FDA-Public Use
  Company Number: PHHY2012JP040973

PATIENT
  Sex: Male

DRUGS (11)
  1. CRESTOR [Concomitant]
     Indication: HYPERCHOLESTEROLAEMIA
     Dosage: 2.5 MG, UNK
     Route: 048
  2. MEXILETINE HYDROCHLORIDE [Concomitant]
     Indication: ARRHYTHMIA
     Dosage: 150 MG, UNK
     Route: 048
  3. TECHNIS [Concomitant]
     Dosage: 60 MG, UNK
     Route: 048
  4. TASIGNA [Interacting]
     Dosage: 300 MG, DAILY
     Route: 048
     Dates: start: 20120530
  5. TASIGNA [Suspect]
     Indication: CHRONIC MYELOID LEUKAEMIA
     Dosage: 600 MG, DAILY
     Route: 048
     Dates: start: 20120417, end: 20120424
  6. LANSOPRAZOLE [Concomitant]
     Indication: GASTROOESOPHAGEAL REFLUX DISEASE
     Dosage: 30 MG, UNK
     Route: 048
  7. DOWNTENSINE [Interacting]
     Indication: HYPERTENSION
     Dosage: 10 MG, DAILY
     Route: 048
     Dates: end: 20120528
  8. CAPTOPRIL [Interacting]
     Indication: HYPERTENSION
     Dosage: 18.75 MG, DAILY
     Route: 048
     Dates: end: 20120528
  9. PROTON PUMP INHIBITORS [Concomitant]
  10. JUVELA NICOTINATE [Concomitant]
     Dosage: 300 MG, UNK
     Route: 048
  11. ULORIC [Concomitant]
     Indication: HYPERURICAEMIA
     Dosage: 10 MG, UNK
     Route: 048
     Dates: start: 20120417, end: 20120424

REACTIONS (7)
  - RASH ERYTHEMATOUS [None]
  - PYREXIA [None]
  - C-REACTIVE PROTEIN INCREASED [None]
  - CHEST PAIN [None]
  - DRUG LEVEL INCREASED [None]
  - DRUG INTERACTION [None]
  - ATRIAL FLUTTER [None]
